FAERS Safety Report 8726903 (Version 2)
Quarter: 2015Q2

REPORT INFORMATION
  Report Type: Report from Study
  Country: US (occurrence: US)
  Receive Date: 20120816
  Receipt Date: 20150626
  Transmission Date: 20150821
  Serious: Yes (Death, Other)
  Sender: FDA-Public Use
  Company Number: US-ROCHE-1099877

PATIENT
  Age: 55 Year
  Sex: Male

DRUGS (4)
  1. ACTIVASE [Suspect]
     Active Substance: ALTEPLASE
     Route: 042
  2. DIABETA [Concomitant]
     Active Substance: GLYBURIDE
  3. AMINOPHYLLINE [Concomitant]
     Active Substance: AMINOPHYLLINE
     Route: 065
  4. ACTIVASE [Suspect]
     Active Substance: ALTEPLASE
     Indication: ACUTE MYOCARDIAL INFARCTION
     Route: 042

REACTIONS (5)
  - Hypotension [Unknown]
  - Metabolic acidosis [Unknown]
  - Constipation [Unknown]
  - Death [Fatal]
  - Tonic convulsion [Unknown]
